FAERS Safety Report 5986073-3 (Version None)
Quarter: 2008Q4

REPORT INFORMATION
  Report Type: 
  Country: None (occurrence: None)
  Receive Date: 20081205
  Receipt Date: 20081205
  Transmission Date: 20090506
  Serious: No
  Sender: FDA-Public Use
  Company Number: None

PATIENT
  Age: 66 Year
  Sex: Female
  Weight: 77.1115 kg

DRUGS (1)
  1. LEVOFLOXACIN [Suspect]
     Indication: GONORRHOEA
     Dosage: ORALLY
     Route: 048
     Dates: start: 20080610, end: 20080620

REACTIONS (7)
  - ASTHENIA [None]
  - CONTUSION [None]
  - DEPRESSION [None]
  - JOINT RANGE OF MOTION DECREASED [None]
  - OEDEMA PERIPHERAL [None]
  - PAIN IN EXTREMITY [None]
  - TENDON RUPTURE [None]
